FAERS Safety Report 5243422-1 (Version None)
Quarter: 2007Q1

REPORT INFORMATION
  Report Type: 
  Country: None (occurrence: None)
  Receive Date: 20070215
  Receipt Date: 20070129
  Transmission Date: 20070707
  Serious: Yes (Death, Hospitalization)
  Sender: FDA-Public Use
  Company Number: 2006001987

PATIENT
  Age: 44 Year
  Sex: Female

DRUGS (3)
  1. ERLOTINIB(TABLET) (ERLOTINIB HCL) [Suspect]
     Indication: PANCREATIC CARCINOMA METASTATIC
     Dosage: 100 MG (QD), ORAL
     Dates: start: 20060731, end: 20061003
  2. BEVACIZUMAB (INJECTION FOR INFUSION) [Suspect]
     Indication: PANCREATIC CARCINOMA METASTATIC
     Dosage: 1 X PER 2 WEEK, INTRAVENOUS
     Route: 042
     Dates: start: 20060731, end: 20061003
  3. GEMCITABINE [Suspect]
     Indication: PANCREATIC CARCINOMA METASTATIC
     Dosage: 1594 MG (1X PER WEEK), INTRAVENOUS
     Route: 042
     Dates: start: 20060731, end: 20060913

REACTIONS (1)
  - CEREBRAL ARTERY EMBOLISM [None]
